FAERS Safety Report 5954618-5 (Version None)
Quarter: 2008Q4

REPORT INFORMATION
  Report Type: 
  Country: None (occurrence: None)
  Receive Date: 20081117
  Receipt Date: 20081109
  Transmission Date: 20090506
  Serious: Yes (Hospitalization)
  Sender: FDA-Public Use
  Company Number: AT-AVENTIS-200820292GDDC

PATIENT
  Sex: Male

DRUGS (3)
  1. LANTUS [Suspect]
     Indication: DIABETES MELLITUS
     Route: 058
  2. ORAL ANTIDIABETICS [Concomitant]
     Indication: DIABETES MELLITUS
     Route: 048
     Dates: start: 20081101
  3. UNKNOWN DRUG [Concomitant]
     Indication: DIABETES MELLITUS
     Route: 048
     Dates: start: 20081101

REACTIONS (1)
  - ANAPHYLACTIC REACTION [None]
